FAERS Safety Report 4606308-9 (Version None)
Quarter: 2005Q2

REPORT INFORMATION
  Report Type: 
  Country: None (occurrence: None)
  Receive Date: 20050303
  Receipt Date: 20041223
  Transmission Date: 20051028
  Serious: No
  Sender: FDA-Public Use
  Company Number: 200421227BWH

PATIENT
  Age: 54 Year
  Sex: Male

DRUGS (2)
  1. LEVITRA [Suspect]
     Dosage: 5 MG, TOTAL DAILY, ORAL
     Route: 048
  2. ZOCOR [Concomitant]

REACTIONS (1)
  - DRUG INEFFECTIVE [None]
